FAERS Safety Report 8789049 (Version 3)
Quarter: 2012Q4

REPORT INFORMATION
  Report Type: 
  Country: US (occurrence: US)
  Receive Date: 20120917
  Receipt Date: 20121207
  Transmission Date: 20130627
  Serious: Yes (Disabling, Other)
  Sender: FDA-Public Use
  Company Number: US-009507513-1208USA000590

PATIENT
  Age: 31 Year
  Sex: Female
  Weight: 57.6 kg

DRUGS (7)
  1. VICTRELIS [Suspect]
     Indication: HEPATITIS C
     Dosage: Taken 4 Capsules by mouth three times a day with food (every 7-9 hours)
     Route: 048
     Dates: start: 20120602, end: 20121116
  2. REBETOL [Suspect]
     Indication: HEPATITIS C
     Dosage: 200 mg, bid
     Route: 048
     Dates: start: 20120504, end: 20121116
  3. PEGASYS [Suspect]
     Indication: HEPATITIS C
     Dosage: 180 Microgram, qw
     Route: 058
     Dates: start: 20120504, end: 20121116
  4. XANAX [Concomitant]
     Dosage: UNK mg, UNK
  5. LOESTRIN [Concomitant]
     Dosage: losetrin 21 tab 1.5/30
  6. PROVIGIL [Concomitant]
     Dosage: 100 mg, UNK
  7. VITAMINS (UNSPECIFIED) [Concomitant]

REACTIONS (3)
  - Anaemia [Recovering/Resolving]
  - Decreased appetite [Recovering/Resolving]
  - Red blood cell count decreased [Unknown]
